FAERS Safety Report 7965116-1 (Version None)
Quarter: 2011Q4

REPORT INFORMATION
  Report Type: 
  Country: None (occurrence: None)
  Receive Date: 20111208
  Receipt Date: 20111128
  Transmission Date: 20120403
  Serious: Yes (Other)
  Sender: FDA-Public Use
  Company Number: US-BAYER-2011-045222

PATIENT
  Age: 26 Year
  Sex: Female
  Weight: 81.633 kg

DRUGS (4)
  1. YAZ [Suspect]
     Indication: CONTRACEPTION
     Dosage: UNK
     Dates: start: 20051101, end: 20100101
  2. YAZ [Suspect]
     Indication: POLYCYSTIC OVARIES
  3. YASMIN [Suspect]
     Indication: CONTRACEPTION
     Dosage: UNK
     Dates: start: 20080101, end: 20080301
  4. YASMIN [Suspect]
     Indication: POLYCYSTIC OVARIES

REACTIONS (10)
  - ANXIETY [None]
  - VOMITING [None]
  - CHOLELITHIASIS [None]
  - CHOLECYSTITIS CHRONIC [None]
  - INJURY [None]
  - PAIN [None]
  - FEAR [None]
  - ANHEDONIA [None]
  - NAUSEA [None]
  - ABDOMINAL PAIN [None]
